FAERS Safety Report 19964017 (Version 4)
Quarter: 2023Q4

REPORT INFORMATION
  Report Type: Spontaneous
  Country: DE (occurrence: DE)
  Receive Date: 20211018
  Receipt Date: 20231229
  Transmission Date: 20240110
  Serious: Yes (Other)
  Sender: FDA-Public Use
  Company Number: DE-009507513-2110DEU004274

PATIENT
  Age: 59 Year
  Sex: Male

DRUGS (2)
  1. PEMBROLIZUMAB [Suspect]
     Active Substance: PEMBROLIZUMAB
     Indication: Cholangiocarcinoma
     Dosage: 200 MILLIGRAM, Q3W
     Route: 042
     Dates: start: 201901
  2. LENVATINIB MESYLATE [Suspect]
     Active Substance: LENVATINIB MESYLATE
     Indication: Cholangiocarcinoma
     Dosage: 10 MILLIGRAM, DAILY
     Route: 048
     Dates: start: 201901

REACTIONS (5)
  - Immune-mediated gastritis [Recovered/Resolved]
  - Immune-mediated enterocolitis [Recovered/Resolved]
  - Pruritus [Recovered/Resolved]
  - Hypertension [Unknown]
  - Off label use [Unknown]

NARRATIVE: CASE EVENT DATE: 20190101
